FAERS Safety Report 5670614-X (Version None)
Quarter: 2008Q1

REPORT INFORMATION
  Report Type: 
  Country: None (occurrence: None)
  Receive Date: 20080314
  Receipt Date: 20080314
  Transmission Date: 20080703
  Serious: Yes (Other)
  Sender: FDA-Public Use
  Company Number: None

PATIENT
  Age: 40 Year
  Sex: Female
  Weight: 49.8957 kg

DRUGS (2)
  1. ARTICAINE [Suspect]
     Indication: ANAESTHESIA
     Dosage: 1.8 CC SEPTOCAINE
     Dates: start: 20080313, end: 20080313
  2. CLARITIN [Concomitant]

REACTIONS (3)
  - ANXIETY [None]
  - DEPRESSED LEVEL OF CONSCIOUSNESS [None]
  - HEART RATE INCREASED [None]
